APPROVED DRUG PRODUCT: DICYCLOMINE HYDROCHLORIDE
Active Ingredient: DICYCLOMINE HYDROCHLORIDE
Strength: 10MG
Dosage Form/Route: CAPSULE;ORAL
Application: A040204 | Product #001 | TE Code: AB
Applicant: WEST WARD PHARMACEUTICAL CORP
Approved: Feb 28, 1997 | RLD: No | RS: No | Type: RX